FAERS Safety Report 8794910 (Version 1)
Quarter: 2012Q4

REPORT INFORMATION
  Report Type: 
  Country: US (occurrence: US)
  Receive Date: 20120917
  Receipt Date: 20120917
  Transmission Date: 20130627
  Serious: Yes (Hospitalization)
  Sender: FDA-Public Use
  Company Number: US-B.I. PHARMACEUTICALS,INC./RIDGEFIELD-2012-BP-22373BP

PATIENT
  Sex: Male

DRUGS (8)
  1. PRADAXA [Suspect]
     Indication: ATRIAL FIBRILLATION
     Dosage: 300 mg
     Route: 048
     Dates: start: 201109, end: 201203
  2. FINASTERIDE [Concomitant]
     Indication: BENIGN PROSTATIC HYPERPLASIA
  3. TAMSULOSIN [Concomitant]
     Indication: BENIGN PROSTATIC HYPERPLASIA
  4. BETHANECHOL [Concomitant]
  5. LOSARTAN [Concomitant]
  6. ASPIRIN [Concomitant]
     Dosage: 325 mg
     Route: 048
  7. METOPROLOL [Concomitant]
     Indication: HYPERTENSION
  8. PRILOSEC [Concomitant]
     Indication: GASTROOESOPHAGEAL REFLUX DISEASE

REACTIONS (1)
  - Thrombosis [Unknown]
